FAERS Safety Report 19826553 (Version 6)
Quarter: 2021Q4

REPORT INFORMATION
  Report Type: Spontaneous
  Country: CN (occurrence: CN)
  Receive Date: 20210913
  Receipt Date: 20211018
  Transmission Date: 20220303
  Serious: Yes (Death, Hospitalization, Other)
  Sender: FDA-Public Use
  Company Number: CN-SA-SAC20210913000194

PATIENT
  Age: 35 Year
  Sex: Male

DRUGS (5)
  1. ELOXATIN [Suspect]
     Active Substance: OXALIPLATIN
     Dosage: 125 MG
  2. FLUOROURACIL [Concomitant]
     Active Substance: FLUOROURACIL
     Dosage: UNK ML
  3. CAMRELIZUMAB [Concomitant]
     Active Substance: CAMRELIZUMAB
     Indication: Targeted cancer therapy
  4. LENVIMA [Concomitant]
     Active Substance: LENVATINIB
     Indication: Targeted cancer therapy
  5. DEXTROSE [Concomitant]
     Active Substance: DEXTROSE
     Dosage: 250 ML

REACTIONS (11)
  - Death [Fatal]
  - Hepatic failure [Fatal]
  - Infection [Fatal]
  - Myelosuppression [Unknown]
  - White blood cell count decreased [Unknown]
  - Platelet count decreased [Unknown]
  - Abdominal pain [Unknown]
  - Pyrexia [Unknown]
  - Infusion related reaction [Unknown]
  - Suspected product quality issue [Unknown]
  - Off label use [Unknown]
